FAERS Safety Report 20149545 (Version 1)
Quarter: 2021Q4

REPORT INFORMATION
  Report Type: Spontaneous
  Country: FR (occurrence: FR)
  Receive Date: 20211205
  Receipt Date: 20211205
  Transmission Date: 20220303
  Serious: Yes (Other)
  Sender: FDA-Public Use
  Company Number: FR-ABBVIE-21K-056-4184409-00

PATIENT
  Age: 79 Year
  Sex: Female
  Weight: 62 kg

DRUGS (9)
  1. VENETOCLAX [Suspect]
     Active Substance: VENETOCLAX
     Indication: Acute myeloid leukaemia
     Dosage: DAY 1
     Route: 048
  2. VENETOCLAX [Suspect]
     Active Substance: VENETOCLAX
     Dosage: DAY 2
     Route: 048
  3. VENETOCLAX [Suspect]
     Active Substance: VENETOCLAX
     Dosage: DAY 3
     Route: 048
  4. VENETOCLAX [Suspect]
     Active Substance: VENETOCLAX
     Route: 048
  5. VENETOCLAX [Suspect]
     Active Substance: VENETOCLAX
     Route: 048
  6. AZACITIDINE [Concomitant]
     Active Substance: AZACITIDINE
     Indication: Product used for unknown indication
  7. POSACONAZOLE [Concomitant]
     Active Substance: POSACONAZOLE
     Indication: Product used for unknown indication
  8. PEVONEDISTAT [Concomitant]
     Active Substance: PEVONEDISTAT
     Indication: Product used for unknown indication
     Dosage: DAY 1
  9. PEVONEDISTAT [Concomitant]
     Active Substance: PEVONEDISTAT
     Dosage: DAY 3

REACTIONS (10)
  - Encephalopathy [Unknown]
  - Headache [Unknown]
  - Vision blurred [Unknown]
  - Neurological symptom [Unknown]
  - Vertigo [Unknown]
  - Aggression [Unknown]
  - Cell death [Unknown]
  - Cholestasis [Unknown]
  - Confusional state [Unknown]
  - Dizziness [Unknown]
